FAERS Safety Report 8280945-5 (Version None)
Quarter: 2012Q2

REPORT INFORMATION
  Report Type: 
  Country: None (occurrence: None)
  Receive Date: 20120412
  Receipt Date: 20120406
  Transmission Date: 20120825
  Serious: Yes (Hospitalization, Other)
  Sender: FDA-Public Use
  Company Number: US-ABBOTT-12P-163-0922819-00

PATIENT
  Age: 58 Year
  Sex: Female

DRUGS (15)
  1. LANTUS [Concomitant]
     Indication: TYPE 2 DIABETES MELLITUS
     Dosage: DAILY
  2. WELLBUTRIN XL [Concomitant]
     Indication: DEPRESSION
     Dosage: DAILY
  3. AMBIEN [Concomitant]
     Indication: INSOMNIA
     Dosage: 10MG QHS
  4. METFORMIN HCL [Concomitant]
     Indication: TYPE 2 DIABETES MELLITUS
  5. METOPROLOL TARTRATE [Concomitant]
     Indication: HYPERTENSION
     Dosage: DAILY
  6. PREDNISONE TAB [Concomitant]
     Indication: RHEUMATOID ARTHRITIS
     Dosage: DAILY
  7. SIMVASTATIN [Concomitant]
     Indication: BLOOD CHOLESTEROL INCREASED
     Dosage: DAILY
  8. GLIMEPIRIDE [Concomitant]
     Indication: TYPE 2 DIABETES MELLITUS
     Dosage: DAILY
  9. NEURONTIN [Concomitant]
     Indication: NEURALGIA
  10. LASIX [Concomitant]
     Indication: HYPERTENSION
     Dosage: DAILY
  11. OMEPRAZOLE [Concomitant]
     Indication: GASTROOESOPHAGEAL REFLUX DISEASE
     Dosage: DAILY
  12. LISINOPRIL [Concomitant]
     Indication: HYPERTENSION
     Dosage: DAILY
  13. HUMIRA [Suspect]
     Indication: RHEUMATOID ARTHRITIS
     Dates: start: 20080101, end: 20100101
  14. HUMIRA [Suspect]
     Dates: start: 20120326
  15. OXYBUTRIN [Concomitant]
     Indication: URINARY INCONTINENCE
     Dosage: DAILY

REACTIONS (5)
  - THROMBOSIS [None]
  - URINARY TRACT INFECTION [None]
  - MIDDLE EAR EFFUSION [None]
  - DRUG THERAPY CHANGED [None]
  - TOOTH INFECTION [None]
